FAERS Safety Report 14282525 (Version 1)
Quarter: 2017Q4

REPORT INFORMATION
  Report Type: Spontaneous
  Country: US (occurrence: US)
  Receive Date: 20171213
  Receipt Date: 20171213
  Transmission Date: 20180321
  Serious: No
  Sender: FDA-Public Use
  Company Number: US-MALLINCKRODT-T201700932

PATIENT
  Sex: Female
  Weight: 63 kg

DRUGS (1)
  1. FENTANYL TRANSDERMAL SYSTEM [Suspect]
     Active Substance: FENTANYL
     Indication: AUTOINFLAMMATORY DISEASE
     Dosage: 75 MCG/HR, Q48HR
     Route: 062

REACTIONS (5)
  - Wrong technique in product usage process [Unknown]
  - Application site hypersensitivity [Unknown]
  - Intentional product use issue [Unknown]
  - Product use complaint [Unknown]
  - Product adhesion issue [Not Recovered/Not Resolved]
